FAERS Safety Report 7478946-X (Version None)
Quarter: 2011Q2

REPORT INFORMATION
  Report Type: 
  Country: None (occurrence: None)
  Receive Date: 20110513
  Receipt Date: 20110425
  Transmission Date: 20111010
  Serious: Yes (Hospitalization)
  Sender: FDA-Public Use
  Company Number: US-BAYER-2011-021552

PATIENT
  Age: 30 Year
  Sex: Female
  Weight: 63 kg

DRUGS (5)
  1. MOTRIN [Concomitant]
     Dosage: UNK UNK, PRN
     Dates: start: 20010101, end: 20110101
  2. YAZ [Suspect]
     Indication: PREMENSTRUAL SYNDROME
  3. ASCORBIC ACID [Concomitant]
     Dosage: UNK UNK, PRN
     Dates: start: 20010101, end: 20110101
  4. YAZ [Suspect]
     Indication: ACNE
     Dosage: UNK
     Dates: start: 20090701, end: 20100301
  5. CELEXA [Concomitant]
     Indication: DEPRESSION
     Dosage: 20 MG, CONT
     Dates: start: 20090101, end: 20100101

REACTIONS (5)
  - ANXIETY [None]
  - EMOTIONAL DISTRESS [None]
  - INJURY [None]
  - PULMONARY EMBOLISM [None]
  - PAIN [None]
